FAERS Safety Report 6895387-4 (Version None)
Quarter: 2010Q3

REPORT INFORMATION
  Report Type: 
  Country: None (occurrence: None)
  Receive Date: 20100802
  Receipt Date: 20100721
  Transmission Date: 20110219
  Serious: Yes (Other)
  Sender: FDA-Public Use
  Company Number: US-PFIZER INC-2009268134

PATIENT
  Sex: Male
  Weight: 112 kg

DRUGS (2)
  1. TIKOSYN [Suspect]
     Indication: ATRIAL FIBRILLATION
     Dosage: 125 UG, 2X/DAY
     Route: 048
     Dates: start: 20080301, end: 20100201
  2. TIKOSYN [Suspect]
     Dosage: 125 UG, 2X/DAY
     Route: 048
     Dates: start: 20100201, end: 20100301

REACTIONS (2)
  - DRUG INEFFECTIVE [None]
  - LUNG INFECTION [None]
